FAERS Safety Report 8144694-6 (Version None)
Quarter: 2012Q1

REPORT INFORMATION
  Report Type: 
  Country: None (occurrence: None)
  Receive Date: 20120217
  Receipt Date: 20120213
  Transmission Date: 20120608
  Serious: Yes (Other)
  Sender: FDA-Public Use
  Company Number: US-PFIZER INC-2012039759

PATIENT

DRUGS (1)
  1. LYRICA [Suspect]
     Indication: PAIN
     Dosage: UNK

REACTIONS (4)
  - BACK DISORDER [None]
  - HALLUCINATION [None]
  - DRUG HYPERSENSITIVITY [None]
  - PAIN [None]
